FAERS Safety Report 22022886 (Version 1)
Quarter: 2023Q1

REPORT INFORMATION
  Report Type: Spontaneous
  Country: KR (occurrence: KR)
  Receive Date: 20230222
  Receipt Date: 20230222
  Transmission Date: 20230418
  Serious: Yes (Other)
  Sender: FDA-Public Use
  Company Number: KR-GILEAD-2023-0617589

PATIENT
  Age: 56 Year
  Sex: Female

DRUGS (2)
  1. VIREAD [Suspect]
     Active Substance: TENOFOVIR DISOPROXIL FUMARATE
     Indication: HIV infection
     Dosage: UNK
     Route: 065
     Dates: start: 2019, end: 202302
  2. BONVIVA PLUS [Concomitant]

REACTIONS (1)
  - Osteoporosis [Unknown]
